FAERS Safety Report 9099212 (Version 2)
Quarter: 2013Q2

REPORT INFORMATION
  Report Type: Report from Study
  Country: US (occurrence: US)
  Receive Date: 20130213
  Receipt Date: 20130508
  Transmission Date: 20140414
  Serious: Yes (Hospitalization)
  Sender: FDA-Public Use
  Company Number: US-ACTELION-A-US2012-74403

PATIENT
  Age: 32 Year
  Sex: Male

DRUGS (1)
  1. TRACLEER [Suspect]
     Indication: PULMONARY ARTERIAL HYPERTENSION
     Dosage: UNK
     Route: 048

REACTIONS (11)
  - Pulmonary oedema [Unknown]
  - Cardiac failure [Unknown]
  - Fluid retention [Unknown]
  - Cardiomegaly [Unknown]
  - Dyspnoea [Unknown]
  - Hypotension [Unknown]
  - Weight increased [Unknown]
  - Oedema [Unknown]
  - Local swelling [Unknown]
  - Nasopharyngitis [Unknown]
  - Dyspnoea [Unknown]
